FAERS Safety Report 13531035 (Version 1)
Quarter: 2017Q2

REPORT INFORMATION
  Report Type: Spontaneous
  Country: US (occurrence: US)
  Receive Date: 20170510
  Receipt Date: 20170510
  Transmission Date: 20170830
  Serious: Yes (Other)
  Sender: FDA-Public Use
  Company Number: US-ASTRAZENECA-2017SE47883

PATIENT
  Sex: Female

DRUGS (1)
  1. PRILOSEC [Suspect]
     Active Substance: OMEPRAZOLE MAGNESIUM
     Route: 048

REACTIONS (6)
  - Suicidal ideation [Unknown]
  - Dyspnoea [Unknown]
  - Chest pain [Unknown]
  - Stress [Unknown]
  - Pain [Unknown]
  - Swelling [Unknown]
